FAERS Safety Report 25912994 (Version 1)
Quarter: 2025Q4

REPORT INFORMATION
  Report Type: Spontaneous
  Country: US (occurrence: US)
  Receive Date: 20251013
  Receipt Date: 20251013
  Transmission Date: 20260117
  Serious: No
  Sender: Kenvue
  Company Number: US-KENVUE-20251000464

PATIENT

DRUGS (1)
  1. VISINE A MULTI-ACTION EYE ALLERGY RELIEF [Suspect]
     Active Substance: NAPHAZOLINE HYDROCHLORIDE\PHENIRAMINE MALEATE
     Indication: Product used for unknown indication
     Dosage: COUPLE OF TIMES
     Route: 047

REACTIONS (1)
  - Eye irritation [Unknown]
